FAERS Safety Report 12775412 (Version 1)
Quarter: 2016Q3

REPORT INFORMATION
  Report Type: Spontaneous
  Country: US (occurrence: US)
  Receive Date: 20160922
  Receipt Date: 20160922
  Transmission Date: 20161109
  Serious: No
  Sender: FDA-Public Use
  Company Number: None

PATIENT
  Age: 57 Year
  Sex: Male
  Weight: 94.5 kg

DRUGS (1)
  1. HYOSCYAMINE SULFATE VIRTUS [Suspect]
     Active Substance: HYOSCYAMINE SULFATE
     Indication: IRRITABLE BOWEL SYNDROME
     Route: 048
     Dates: start: 20160501, end: 20160910

REACTIONS (11)
  - Pain [None]
  - Constipation [None]
  - Diarrhoea [None]
  - Micturition disorder [None]
  - Abdominal pain [None]
  - Vertigo [None]
  - Abdominal distension [None]
  - Skin exfoliation [None]
  - Drug effect variable [None]
  - Erectile dysfunction [None]
  - Premature ejaculation [None]

NARRATIVE: CASE EVENT DATE: 20160501
